FAERS Safety Report 5118236-3 (Version None)
Quarter: 2006Q4

REPORT INFORMATION
  Report Type: 
  Country: None (occurrence: None)
  Receive Date: 20061002
  Receipt Date: 20060622
  Transmission Date: 20070319
  Serious: No
  Sender: FDA-Public Use
  Company Number: US-BRISTOL-MYERS SQUIBB COMPANY-13420963

PATIENT
  Age: 59 Year
  Sex: Female
  Weight: 75 kg

DRUGS (6)
  1. ORENCIA [Suspect]
     Route: 042
     Dates: start: 20060605
  2. TOPROL-XL [Concomitant]
  3. FOLIC ACID [Concomitant]
  4. PROTONIX [Concomitant]
  5. ZETIA [Concomitant]
  6. LYRICA [Concomitant]

REACTIONS (4)
  - BACK PAIN [None]
  - BLOOD PRESSURE INCREASED [None]
  - HEADACHE [None]
  - PYREXIA [None]
